FAERS Safety Report 9931794 (Version 1)
Quarter: 2014Q1

REPORT INFORMATION
  Report Type: Spontaneous
  Country: US (occurrence: None)
  Receive Date: 20140226
  Receipt Date: 20140226
  Transmission Date: 20141002
  Serious: Yes (Other)
  Sender: FDA-Public Use
  Company Number: KAD201402-000256

PATIENT
  Sex: Male

DRUGS (3)
  1. RIBASPHERE RIBAPAK (RIBAVIRIN) [Suspect]
     Dates: start: 201312
  2. RIBAVIRIN (RIBAVIRIN) [Suspect]
  3. PEGASYS (PEGINTERFERON ALFA-2A) [Suspect]
     Dates: start: 201312

REACTIONS (3)
  - Malaise [None]
  - Weight decreased [None]
  - Unevaluable event [None]
